FAERS Safety Report 22022892 (Version 3)
Quarter: 2023Q2

REPORT INFORMATION
  Report Type: Spontaneous
  Country: JP (occurrence: JP)
  Receive Date: 20230222
  Receipt Date: 20230411
  Transmission Date: 20230722
  Serious: Yes (Life-Threatening, Other)
  Sender: FDA-Public Use
  Company Number: JP-MSD-M2023-06675

PATIENT
  Age: 71 Year
  Sex: Male
  Weight: 52 kg

DRUGS (9)
  1. KEYTRUDA [Suspect]
     Active Substance: PEMBROLIZUMAB
     Indication: Non-small cell lung cancer
     Dosage: 200 MILLIGRAM, Q3W
     Route: 041
     Dates: start: 20220824, end: 20230110
  2. CISPLATIN [Concomitant]
     Active Substance: CISPLATIN
     Indication: Non-small cell lung cancer
     Dosage: 115 MILLIGRAM, Q3W
     Route: 041
     Dates: start: 20220824, end: 20221115
  3. PEMETREXED DISODIUM [Concomitant]
     Active Substance: PEMETREXED DISODIUM
     Indication: Non-small cell lung cancer
     Dosage: 750 MILLIGRAM, Q3W
     Route: 041
     Dates: start: 20220824, end: 20221115
  4. CARBOCYSTEINE [Concomitant]
     Active Substance: CARBOCYSTEINE
     Indication: Productive cough
     Dosage: 500 MILLIGRAM, TID
     Route: 048
     Dates: start: 20220801
  5. DEXTROMETHORPHAN HYDROBROMIDE [Concomitant]
     Active Substance: DEXTROMETHORPHAN HYDROBROMIDE
     Indication: Cough
     Dosage: UNK
     Route: 048
     Dates: start: 20220801
  6. VITAMINS [Concomitant]
     Active Substance: VITAMINS
     Indication: Prophylaxis
     Dosage: 1 GRAM, QD
     Route: 048
     Dates: start: 20220827, end: 20230125
  7. EMEND [Concomitant]
     Active Substance: APREPITANT
     Indication: Prophylaxis
     Dosage: UNK
     Route: 048
     Dates: start: 20220827, end: 20230125
  8. DIHYDROCODEINE PHOSPHATE [Concomitant]
     Active Substance: DIHYDROCODEINE PHOSPHATE
     Indication: Cough
     Dosage: 0.83 GRAM, QD
     Route: 048
     Dates: start: 20220801
  9. ALIMTA [Concomitant]
     Active Substance: PEMETREXED DISODIUM
     Dosage: 750 MILLIGRAM
     Route: 065
     Dates: start: 20230110

REACTIONS (1)
  - Interstitial lung disease [Not Recovered/Not Resolved]

NARRATIVE: CASE EVENT DATE: 20230119
